FAERS Safety Report 21780672 (Version 1)
Quarter: 2022Q4

REPORT INFORMATION
  Report Type: Spontaneous
  Country: US (occurrence: US)
  Receive Date: 20221227
  Receipt Date: 20221227
  Transmission Date: 20230113
  Serious: No
  Sender: FDA-Public Use
  Company Number: US-002147023-NVSC2022US298931

PATIENT
  Sex: Male

DRUGS (2)
  1. PERPHENAZINE [Suspect]
     Active Substance: PERPHENAZINE
     Indication: Bipolar disorder
     Dosage: UNK
     Route: 065
  2. LITHIUM [Suspect]
     Active Substance: LITHIUM
     Indication: Product used for unknown indication
     Route: 065

REACTIONS (3)
  - Mania [Unknown]
  - Hypophagia [Unknown]
  - Insomnia [Unknown]

NARRATIVE: CASE EVENT DATE: 20221223
